FAERS Safety Report 10193204 (Version 1)
Quarter: 2014Q2

REPORT INFORMATION
  Report Type: Spontaneous
  Country: US (occurrence: US)
  Receive Date: 20140524
  Receipt Date: 20140524
  Transmission Date: 20141212
  Serious: No
  Sender: FDA-Public Use
  Company Number: US-SA-2013SA110915

PATIENT
  Age: 74 Year
  Sex: Female

DRUGS (5)
  1. LANTUS SOLOSTAR [Suspect]
     Indication: TYPE 2 DIABETES MELLITUS
     Dosage: START - THIS MORNING DOSE:20 UNIT(S)
     Route: 051
  2. GLIMEPIRIDE [Suspect]
     Route: 065
  3. VICTOZA [Suspect]
     Route: 065
  4. SOLOSTAR [Concomitant]
     Dosage: DOSE:20 UNIT(S)
  5. ZANTAC [Concomitant]
     Indication: GASTROOESOPHAGEAL REFLUX DISEASE
     Route: 065

REACTIONS (3)
  - Abdominal discomfort [Unknown]
  - Blood glucose increased [Unknown]
  - Glycosylated haemoglobin increased [Unknown]
